FAERS Safety Report 10526185 (Version 1)
Quarter: 2014Q4

REPORT INFORMATION
  Report Type: Spontaneous
  Country: FR (occurrence: FR)
  Receive Date: 20141017
  Receipt Date: 20141017
  Transmission Date: 20150528
  Serious: Yes (Life-Threatening, Hospitalization, Other)
  Sender: FDA-Public Use
  Company Number: FR-ASTRAZENECA-2014SE77729

PATIENT
  Age: 83 Year
  Sex: Female

DRUGS (5)
  1. NEUPRO [Concomitant]
     Active Substance: ROTIGOTINE
     Route: 062
  2. CRESTOR [Suspect]
     Active Substance: ROSUVASTATIN CALCIUM
     Route: 048
     Dates: end: 20140908
  3. MONICOL [Concomitant]
  4. DOLIPRANE [Concomitant]
     Active Substance: ACETAMINOPHEN
  5. CLOPIDOGREL [Concomitant]
     Active Substance: CLOPIDOGREL BISULFATE

REACTIONS (8)
  - Pneumonia aspiration [Unknown]
  - Leukocyte alkaline phosphatase increased [Recovering/Resolving]
  - Epilepsy [Unknown]
  - Gamma-glutamyltransferase increased [Recovering/Resolving]
  - Vomiting [Unknown]
  - Escherichia pyelonephritis [Unknown]
  - Transaminases increased [Recovered/Resolved]
  - Malaise [Unknown]

NARRATIVE: CASE EVENT DATE: 20140908
